FAERS Safety Report 11022214 (Version 1)
Quarter: 2015Q2

REPORT INFORMATION
  Report Type: Spontaneous
  Country: FR (occurrence: FR)
  Receive Date: 20150413
  Receipt Date: 20150413
  Transmission Date: 20150821
  Serious: Yes (Life-Threatening, Hospitalization, Other)
  Sender: FDA-Public Use
  Company Number: FR-BAYER-2015-061443

PATIENT
  Age: 30 Year
  Sex: Female
  Weight: 74 kg

DRUGS (1)
  1. MIRENA [Suspect]
     Active Substance: LEVONORGESTREL
     Indication: CONTRACEPTION
     Dosage: 20 MCG/24HR, CONT
     Route: 015
     Dates: start: 201408

REACTIONS (11)
  - Shock haemorrhagic [Recovering/Resolving]
  - Malaise [None]
  - Amenorrhoea [None]
  - Ectopic pregnancy with contraceptive device [None]
  - Ruptured ectopic pregnancy [Recovering/Resolving]
  - Uterine haemorrhage [None]
  - Peritoneal haemorrhage [None]
  - Pelvic pain [None]
  - Drug ineffective [None]
  - Menorrhagia [None]
  - Device dislocation [None]

NARRATIVE: CASE EVENT DATE: 20150222
